FAERS Safety Report 4528572-7 (Version None)
Quarter: 2004Q4

REPORT INFORMATION
  Report Type: 
  Country: None (occurrence: None)
  Receive Date: 20041216
  Receipt Date: 20041206
  Transmission Date: 20050328
  Serious: Yes (Hospitalization, Other)
  Sender: FDA-Public Use
  Company Number: PHRM2004FR03572

PATIENT
  Age: 59 Year
  Sex: Female
  Weight: 57 kg

DRUGS (6)
  1. ZOMETA [Suspect]
     Indication: HYPERCALCAEMIA
     Dosage: UNK, UNK
     Route: 042
     Dates: end: 20040821
  2. CYCLOPHOSPHAMIDE [Suspect]
     Indication: BREAST CANCER FEMALE
     Dosage: 800 MG
     Route: 042
     Dates: start: 20040726, end: 20040726
  3. FARMORUBICINE [Suspect]
     Indication: BREAST CANCER FEMALE
     Dosage: 170 MG
     Route: 042
     Dates: start: 20040726, end: 20040726
  4. FLUOROURACIL ^ROCHE^ [Suspect]
     Indication: BREAST CANCER FEMALE
     Dosage: 800 MG
     Route: 042
     Dates: start: 20040726, end: 20040726
  5. CARDIOXANE [Suspect]
     Route: 042
     Dates: start: 20040726, end: 20040726
  6. NEUPOGEN [Suspect]
     Indication: AGRANULOCYTOSIS
     Route: 058

REACTIONS (10)
  - AGRANULOCYTOSIS [None]
  - BLOOD CREATININE INCREASED [None]
  - BLOOD UREA INCREASED [None]
  - DEHYDRATION [None]
  - GLYCOSURIA [None]
  - HYPOKALAEMIA [None]
  - HYPOPHOSPHATAEMIA [None]
  - METABOLIC ACIDOSIS [None]
  - PROTEINURIA [None]
  - RENAL TUBULAR DISORDER [None]
